FAERS Safety Report 11795200 (Version 1)
Quarter: 2015Q4

REPORT INFORMATION
  Report Type: Report from Study
  Country: IT (occurrence: IT)
  Receive Date: 20151202
  Receipt Date: 20151202
  Transmission Date: 20160305
  Serious: Yes (Other)
  Sender: FDA-Public Use
  Company Number: IT-BAYER-2015-477735

PATIENT
  Age: 64 Year
  Sex: Male

DRUGS (4)
  1. LOW DOSE ASPIRIN [Suspect]
     Active Substance: ASPIRIN
     Indication: ANTIPHOSPHOLIPID SYNDROME
  2. CLOPIDOGREL [Interacting]
     Active Substance: CLOPIDOGREL BISULFATE
  3. HEPARIN [Interacting]
     Active Substance: HEPARIN SODIUM
     Dosage: 100 UI/KG
  4. LOW DOSE ASPIRIN [Interacting]
     Active Substance: ASPIRIN
     Indication: UNDIFFERENTIATED CONNECTIVE TISSUE DISEASE

REACTIONS (4)
  - Labelled drug-drug interaction medication error [None]
  - Post procedural haemorrhage [None]
  - Product use issue [None]
  - Myocardial infarction [None]
